FAERS Safety Report 14908609 (Version 1)
Quarter: 2018Q2

REPORT INFORMATION
  Report Type: Spontaneous
  Country: DK (occurrence: DK)
  Receive Date: 20180517
  Receipt Date: 20180517
  Transmission Date: 20180711
  Serious: Yes (Other)
  Sender: FDA-Public Use
  Company Number: DK-AUROBINDO-AUR-APL-2017-40713

PATIENT
  Age: 46 Year
  Sex: Male

DRUGS (4)
  1. OLANZAPINE. [Suspect]
     Active Substance: OLANZAPINE
     Indication: SUBSTANCE-INDUCED PSYCHOTIC DISORDER
     Dosage: 20 MILLIGRAM
     Route: 065
  2. OLANZAPINE. [Suspect]
     Active Substance: OLANZAPINE
     Dosage: 20 MG, QD
     Route: 065
  3. PANTOPRAZOLE [Concomitant]
     Active Substance: PANTOPRAZOLE
     Indication: PRODUCT USED FOR UNKNOWN INDICATION
     Dosage: UNK ()
     Route: 065
  4. ARIPIPRAZOLE. [Suspect]
     Active Substance: ARIPIPRAZOLE
     Indication: SUBSTANCE-INDUCED PSYCHOTIC DISORDER
     Dosage: 10 MG, QD
     Route: 065

REACTIONS (9)
  - Blood creatine phosphokinase increased [Recovered/Resolved]
  - Tremor [Recovered/Resolved]
  - Dizziness [Recovered/Resolved]
  - Muscle rigidity [Recovered/Resolved]
  - Hypotension [Recovered/Resolved]
  - Parkinsonism [Recovered/Resolved]
  - Constipation [Recovered/Resolved]
  - Muscle spasms [Recovered/Resolved]
  - Feeling abnormal [Recovered/Resolved]
